FAERS Safety Report 9670823 (Version 3)
Quarter: 2014Q2

REPORT INFORMATION
  Report Type: Spontaneous
  Country: US (occurrence: US)
  Receive Date: 20131106
  Receipt Date: 20140521
  Transmission Date: 20141212
  Serious: Yes (Hospitalization, Other)
  Sender: FDA-Public Use
  Company Number: PHHY2013US093607

PATIENT
  Sex: Female

DRUGS (7)
  1. RITALIN [Suspect]
     Indication: LETHARGY
     Dosage: UNK
     Route: 065
  2. BACLOFEN INTRATHECAL [Suspect]
     Indication: PAIN
     Dosage: 91.18 UG, PER DAY
     Route: 037
     Dates: start: 2005
  3. GABAPENTIN [Suspect]
     Indication: PAIN
     Dosage: UNK
  4. PROVIGIL//MODAFINIL [Suspect]
     Indication: LETHARGY
     Dosage: UNK UKN, UNK
  5. MARCAINE [Suspect]
     Dosage: 2.343 UG, PER DAY
     Route: 037
  6. CYMBALTA [Suspect]
     Indication: PAIN
     Dosage: UNK UKN, UNK
  7. NORMAL SALINE [Concomitant]
     Dosage: UNK UKN, UNK
     Dates: start: 20131014

REACTIONS (14)
  - Condition aggravated [Unknown]
  - Performance status decreased [Not Recovered/Not Resolved]
  - Photopsia [Unknown]
  - Dyspnoea [Unknown]
  - Amnesia [Unknown]
  - Pain [Unknown]
  - Infusion site mass [Unknown]
  - Paraesthesia [Unknown]
  - Lethargy [Unknown]
  - Chest discomfort [Unknown]
  - Confusional state [Unknown]
  - Heart rate abnormal [Unknown]
  - Hypersensitivity [Unknown]
  - No therapeutic response [Unknown]
